FAERS Safety Report 7250655-1 (Version None)
Quarter: 2011Q1

REPORT INFORMATION
  Report Type: 
  Country: None (occurrence: None)
  Receive Date: 20110128
  Receipt Date: 20110125
  Transmission Date: 20110831
  Serious: Yes (Hospitalization)
  Sender: FDA-Public Use
  Company Number: CH-ROCHE-755407

PATIENT
  Sex: Male
  Weight: 78 kg

DRUGS (3)
  1. RIBAVIRIN [Suspect]
     Indication: HEPATITIS C
     Route: 065
  2. TACROLIMUS [Suspect]
     Route: 065
  3. CONCOR [Suspect]
     Route: 065

REACTIONS (4)
  - ANGINA UNSTABLE [None]
  - INFECTION [None]
  - ENCEPHALOPATHY [None]
  - CORONARY ARTERY DISEASE [None]
